FAERS Safety Report 14464263 (Version 1)
Quarter: 2018Q1

REPORT INFORMATION
  Report Type: Other
  Country: US (occurrence: US)
  Receive Date: 20180130
  Receipt Date: 20180130
  Transmission Date: 20180509
  Serious: Yes (Hospitalization)
  Sender: FDA-Public Use
  Company Number: US-ACORDA-ACO_134487_2017

PATIENT
  Age: 46 Year
  Sex: Female

DRUGS (1)
  1. AMPYRA [Suspect]
     Active Substance: DALFAMPRIDINE
     Indication: PRODUCT USED FOR UNKNOWN INDICATION
     Dosage: 10 MG, BID
     Route: 048
     Dates: start: 20170112

REACTIONS (6)
  - Drug ineffective [Unknown]
  - Staphylococcal infection [Not Recovered/Not Resolved]
  - Muscle spasms [Unknown]
  - Joint swelling [Not Recovered/Not Resolved]
  - Renal impairment [Unknown]
  - Therapy cessation [Unknown]

NARRATIVE: CASE EVENT DATE: 201702
